FAERS Safety Report 9420713 (Version 1)
Quarter: 2013Q3

REPORT INFORMATION
  Report Type: Spontaneous
  Country: US (occurrence: US)
  Receive Date: 20130725
  Receipt Date: 20130725
  Transmission Date: 20140515
  Serious: No
  Sender: FDA-Public Use
  Company Number: US-ABBOTT-13P-163-1088779-00

PATIENT
  Sex: Female
  Weight: 65.38 kg

DRUGS (5)
  1. SYNTHROID [Suspect]
     Indication: AUTOIMMUNE THYROIDITIS
     Dates: start: 1995, end: 1995
  2. UNITHROID [Suspect]
     Indication: PRODUCT USED FOR UNKNOWN INDICATION
  3. ARMOUR THYROID [Suspect]
     Indication: AUTOIMMUNE THYROIDITIS
     Dates: start: 1995, end: 1995
  4. VITAMINS [Concomitant]
     Indication: VITAMIN SUPPLEMENTATION
  5. TYLENOL [Concomitant]
     Indication: PAIN

REACTIONS (5)
  - Malaise [Unknown]
  - Lactose intolerance [Unknown]
  - Abdominal distension [Recovered/Resolved]
  - Diarrhoea [Recovered/Resolved]
  - Nausea [Recovered/Resolved]
